FAERS Safety Report 21410193 (Version 2)
Quarter: 2022Q4

REPORT INFORMATION
  Report Type: Spontaneous
  Country: US (occurrence: US)
  Receive Date: 20221005
  Receipt Date: 20221006
  Transmission Date: 20230113
  Serious: No
  Sender: FDA-Public Use
  Company Number: US-ALLERGAN-2223425US

PATIENT
  Age: 53 Year
  Sex: Male

DRUGS (2)
  1. QULIPTA [Suspect]
     Active Substance: ATOGEPANT
     Indication: Product used for unknown indication
     Dosage: UNK
     Dates: start: 20220713
  2. UBRELVY [Suspect]
     Active Substance: UBROGEPANT
     Indication: Product used for unknown indication
     Dosage: UNK
     Dates: start: 20210730

REACTIONS (4)
  - Dizziness [Not Recovered/Not Resolved]
  - Vertigo [Unknown]
  - Therapeutic product effect decreased [Unknown]
  - Headache [Unknown]

NARRATIVE: CASE EVENT DATE: 20220701
